FAERS Safety Report 23397323 (Version 2)
Quarter: 2024Q1

REPORT INFORMATION
  Report Type: Report from Study
  Country: US (occurrence: US)
  Receive Date: 20240112
  Receipt Date: 20240116
  Transmission Date: 20240409
  Serious: Yes (Other)
  Sender: FDA-Public Use
  Company Number: US-UCBSA-2024001119

PATIENT
  Age: 50 Year
  Sex: Male
  Weight: 87.8 kg

DRUGS (11)
  1. LEVETIRACETAM [Suspect]
     Active Substance: LEVETIRACETAM
     Indication: Seizure
     Dosage: 1500 MG ORAL 3 TIMES DAILY, 2 TABS TID
     Route: 048
  2. LEVETIRACETAM [Suspect]
     Active Substance: LEVETIRACETAM
     Dosage: TAKE 4 TABLETS (3000 MG TOTAL BY MOUTH 1 (ONE) TIME EACH DAY ORAI
     Route: 048
     Dates: start: 20230526, end: 20230831
  3. VIMPAT [Suspect]
     Active Substance: LACOSAMIDE
     Indication: Epilepsy
     Dosage: 200 MILLIGRAM, 2X/DAY (BID)
     Route: 048
     Dates: start: 20230307, end: 20230925
  4. VIMPAT [Suspect]
     Active Substance: LACOSAMIDE
     Dosage: 100 MILLIGRAM, 2X/DAY (BID)
     Route: 048
     Dates: start: 20230308, end: 20230526
  5. NAYZILAM [Suspect]
     Active Substance: MIDAZOLAM
     Indication: Seizure
     Dosage: UNK, ADRAIRLISTER 5 MG INTO 2 EACH AFFECTED NOSTRIL(S) IF NEEDED
  6. TOPAMAX [Suspect]
     Active Substance: TOPIRAMATE
     Indication: Epilepsy
     Dosage: 100 MILLIGRAM, 3X/DAY (TID)
     Route: 048
  7. MOBIC [Concomitant]
     Active Substance: MELOXICAM
     Indication: Product used for unknown indication
     Dosage: 7.5 MILLIGRAM, ONCE DAILY (QD)
     Route: 048
  8. EPIDIOLEX [Concomitant]
     Active Substance: CANNABIDIOL
     Indication: Product used for unknown indication
     Dosage: 1ML (100 MG TOTAL BY MOUTH 2 (TWO) TIMES A DAY FOR 10 DAYS
     Route: 048
     Dates: start: 20230527
  9. EPIDIOLEX [Concomitant]
     Active Substance: CANNABIDIOL
     Dosage: THEN 2 ML (200 MG TOTAL) 2 (TWO) TIMES A DAY FOR 10 DAYS
     Route: 048
  10. EPIDIOLEX [Concomitant]
     Active Substance: CANNABIDIOL
     Dosage: THEN 3 ML (300 MG TOTAL) 2 (TWO) TIMES A DAY
     Route: 048
     Dates: end: 20230716
  11. IBUPROFEN [Concomitant]
     Active Substance: IBUPROFEN
     Indication: Product used for unknown indication
     Dosage: 800 MILLIGRAM, 3X/DAY (TID)
     Route: 048
     Dates: start: 20230216

REACTIONS (9)
  - Seizure [Unknown]
  - Hemianopia [Unknown]
  - Memory impairment [Unknown]
  - Confusional state [Unknown]
  - Fatigue [Unknown]
  - Sedation [Unknown]
  - Vision blurred [Unknown]
  - Cognitive disorder [Unknown]
  - Prescribed overdose [Unknown]

NARRATIVE: CASE EVENT DATE: 20230526
